FAERS Safety Report 4482304-X (Version None)
Quarter: 2004Q4

REPORT INFORMATION
  Report Type: 
  Country: None (occurrence: None)
  Receive Date: 20041022
  Receipt Date: 20040624
  Transmission Date: 20050328
  Serious: Yes (Life-Threatening, Hospitalization)
  Sender: FDA-Public Use
  Company Number: US-MERCK-0406USA02361

PATIENT
  Age: 66 Year
  Sex: Female
  Weight: 68 kg

DRUGS (6)
  1. FOSAMAX [Suspect]
     Indication: OSTEOPOROSIS
     Route: 048
     Dates: start: 20030705, end: 20030705
  2. MAXZIDE [Concomitant]
     Route: 065
  3. VERAPAMIL MSD LP [Concomitant]
     Route: 048
  4. ZOCOR [Concomitant]
     Route: 048
  5. VITAMINS (UNSPECIFIED) [Concomitant]
     Route: 065
  6. CALCIUM (UNSPECIFIED) AND VITAMIN D (UNSPECIFIED) [Concomitant]
     Route: 065

REACTIONS (5)
  - CHEST PAIN [None]
  - DIARRHOEA [None]
  - FATIGUE [None]
  - LOOSE STOOLS [None]
  - PAIN [None]
